FAERS Safety Report 10410590 (Version 2)
Quarter: 2014Q3

REPORT INFORMATION
  Report Type: Spontaneous
  Country: US (occurrence: US)
  Receive Date: 20140826
  Receipt Date: 20140826
  Transmission Date: 20150326
  Serious: Yes (Other)
  Sender: FDA-Public Use
  Company Number: US-BRISTOL-MYERS SQUIBB COMPANY-20701256

PATIENT
  Age: 46 Year
  Sex: Female

DRUGS (2)
  1. KENALOG-40 [Suspect]
     Active Substance: TRIAMCINOLONE ACETONIDE
     Indication: BURSITIS
     Dosage: STR:40MG/ML
     Route: 014
     Dates: start: 20140416, end: 20140416
  2. LIDOCAINE. [Suspect]
     Active Substance: LIDOCAINE
     Indication: BURSITIS
     Dosage: STR:0.5%
     Route: 014
     Dates: start: 20140416, end: 20140416

REACTIONS (1)
  - Hypersensitivity [Recovering/Resolving]

NARRATIVE: CASE EVENT DATE: 20140416
